FAERS Safety Report 10394823 (Version 3)
Quarter: 2014Q4

REPORT INFORMATION
  Report Type: Spontaneous
  Country: US (occurrence: US)
  Receive Date: 20140820
  Receipt Date: 20141203
  Transmission Date: 20150528
  Serious: Yes (Other)
  Sender: FDA-Public Use
  Company Number: US-BEH-2014041873

PATIENT
  Age: 21 Year
  Sex: Female

DRUGS (1)
  1. IVIG [Suspect]
     Active Substance: HUMAN IMMUNOGLOBULIN G
     Indication: IMMUNODEFICIENCY COMMON VARIABLE
     Route: 042

REACTIONS (5)
  - Axonal neuropathy [Unknown]
  - Muscular weakness [Unknown]
  - Asthenia [Unknown]
  - Peripheral sensorimotor neuropathy [Unknown]
  - Activities of daily living impaired [Unknown]
